FAERS Safety Report 14900967 (Version 5)
Quarter: 2019Q1

REPORT INFORMATION
  Report Type: Report from Study
  Country: JP (occurrence: JP)
  Receive Date: 20180516
  Receipt Date: 20190125
  Transmission Date: 20190417
  Serious: Yes (Other)
  Sender: FDA-Public Use
  Company Number: JP-GLAXOSMITHKLINE-JP2018JPN083259

PATIENT
  Age: 78 Year
  Sex: Male

DRUGS (8)
  1. MEPOLIZUMAB [Suspect]
     Active Substance: MEPOLIZUMAB
     Indication: ASTHMA
     Dosage: 100 MG, UNK, ONCE EVERY FOUR WEEKS
     Route: 058
     Dates: start: 20180219, end: 20180219
  2. MEPOLIZUMAB [Suspect]
     Active Substance: MEPOLIZUMAB
     Dosage: 100 MG, UNK
     Route: 058
     Dates: start: 20180417, end: 20180417
  3. MEPOLIZUMAB [Suspect]
     Active Substance: MEPOLIZUMAB
     Indication: ASTHMA-CHRONIC OBSTRUCTIVE PULMONARY DISEASE OVERLAP SYNDROME
     Dosage: 100 MG, UNK
     Route: 058
     Dates: start: 20180319, end: 20180319
  4. FLUTIFORM AEROSOL [Concomitant]
     Active Substance: FLUTICASONE PROPIONATE\FORMOTEROL FUMARATE
     Indication: ASTHMA
     Dosage: 250 ?G, BID
     Dates: start: 20180126
  5. CARBOCISTEINE TABLETS [Concomitant]
     Active Substance: CARBOCYSTEINE
     Indication: BRONCHITIS CHRONIC
     Dosage: 500 MG, TID
     Dates: start: 20171207
  6. KIPRES TABLETS [Concomitant]
     Indication: ASTHMA
     Dosage: 10 MG, QD
     Dates: start: 20171207
  7. MUCODYNE TABLETS [Concomitant]
     Indication: BRONCHITIS CHRONIC
     Dosage: 500 MG, TID
     Dates: start: 20171207
  8. SPIRIVA RESPIMAT [Concomitant]
     Active Substance: TIOTROPIUM BROMIDE
     Indication: CHRONIC OBSTRUCTIVE PULMONARY DISEASE
     Dosage: 5 ?G, QD
     Dates: start: 20171207

REACTIONS (3)
  - Platelet count decreased [Recovered/Resolved]
  - Immune thrombocytopenic purpura [Recovered/Resolved]
  - Interleukin level increased [Recovered/Resolved]

NARRATIVE: CASE EVENT DATE: 201802
